FAERS Safety Report 12505282 (Version 1)
Quarter: 2016Q2

REPORT INFORMATION
  Report Type: Spontaneous
  Country: GB (occurrence: GB)
  Receive Date: 20160628
  Receipt Date: 20160628
  Transmission Date: 20160815
  Serious: Yes (Life-Threatening, Hospitalization, Other)
  Sender: FDA-Public Use
  Company Number: GB-BAYER-2016-117673

PATIENT
  Age: 67 Year
  Sex: Female
  Weight: 80 kg

DRUGS (11)
  1. DOCETAXEL. [Concomitant]
     Active Substance: DOCETAXEL
     Indication: BREAST CANCER STAGE IV
     Dosage: UNK
     Dates: end: 20160201
  2. ADCAL-D3 [Concomitant]
     Active Substance: CALCIUM CARBONATE\CHOLECALCIFEROL
  3. ZOMORPH [Concomitant]
     Active Substance: MORPHINE SULFATE
     Dosage: UNK
  4. PERTUZUMAB [Concomitant]
     Active Substance: PERTUZUMAB
     Indication: BREAST CANCER STAGE IV
     Dosage: 1 DF, Q3WK
  5. LETROZOLE. [Concomitant]
     Active Substance: LETROZOLE
     Dosage: UNK
  6. CIPROFLOXACIN. [Suspect]
     Active Substance: CIPROFLOXACIN
     Indication: ANTIBIOTIC THERAPY
     Dosage: UNK
  7. HERCEPTIN [Concomitant]
     Active Substance: TRASTUZUMAB
     Indication: BREAST CANCER STAGE IV
     Dosage: 1 DF, Q3WK
  8. OMEPRAZOLE. [Concomitant]
     Active Substance: OMEPRAZOLE
     Dosage: UNK
  9. CLEXANE [Suspect]
     Active Substance: ENOXAPARIN SODIUM
     Indication: PERIPHERAL EMBOLISM
     Dosage: UNK
     Dates: start: 20160317, end: 20160407
  10. DENOSUMAB [Concomitant]
     Active Substance: DENOSUMAB
     Indication: BONE DISORDER
     Dosage: 1 DF, Q6WK
  11. PERTUZUMAB [Concomitant]
     Active Substance: PERTUZUMAB
     Dosage: UNK

REACTIONS (10)
  - Blister [Recovering/Resolving]
  - Skin haemorrhage [Recovering/Resolving]
  - Dermatitis [Recovering/Resolving]
  - Rash erythematous [Recovering/Resolving]
  - Scab [Recovering/Resolving]
  - Pain [Not Recovered/Not Resolved]
  - Burning sensation [Recovering/Resolving]
  - Erythema multiforme [Recovering/Resolving]
  - Protein deficiency [Unknown]
  - Skin erosion [Recovering/Resolving]
